FAERS Safety Report 5332418-7 (Version None)
Quarter: 2007Q2

REPORT INFORMATION
  Report Type: 
  Country: None (occurrence: None)
  Receive Date: 20070523
  Receipt Date: 20070515
  Transmission Date: 20071010
  Serious: Yes (Hospitalization, Other)
  Sender: FDA-Public Use
  Company Number: CA-JNJFOC-20060800119

PATIENT
  Sex: Male

DRUGS (5)
  1. REMICADE [Suspect]
     Indication: CROHN'S DISEASE
     Route: 042
  2. PROVACID [Concomitant]
     Route: 048
  3. MTX [Concomitant]
     Route: 058
  4. CIPRO [Concomitant]
     Route: 048
  5. FLAGYL [Concomitant]
     Route: 048

REACTIONS (2)
  - CYTOMEGALOVIRUS INFECTION [None]
  - LARGE INTESTINAL OBSTRUCTION [None]
